FAERS Safety Report 7771013-7 (Version None)
Quarter: 2011Q3

REPORT INFORMATION
  Report Type: 
  Country: None (occurrence: None)
  Receive Date: 20110922
  Receipt Date: 20100913
  Transmission Date: 20111222
  Serious: No
  Sender: FDA-Public Use
  Company Number: US-ASTRAZENECA-2010SE43019

PATIENT
  Age: 466 Month
  Sex: Female
  Weight: 99.8 kg

DRUGS (6)
  1. SEROQUEL [Suspect]
     Indication: BIPOLAR DISORDER
     Route: 048
     Dates: start: 20100601, end: 20100701
  2. SEROQUEL [Suspect]
     Route: 048
     Dates: start: 20100701, end: 20100801
  3. SEROQUEL [Suspect]
     Route: 048
     Dates: start: 20100801
  4. LAMICTAL [Concomitant]
  5. LAMICTAL [Concomitant]
  6. WELLBUTRIN [Concomitant]

REACTIONS (5)
  - DRUG EFFECT DECREASED [None]
  - NAUSEA [None]
  - MYALGIA [None]
  - DRUG DOSE OMISSION [None]
  - HEADACHE [None]
